FAERS Safety Report 4916627-4 (Version None)
Quarter: 2006Q1

REPORT INFORMATION
  Report Type: 
  Country: None (occurrence: None)
  Receive Date: 20060216
  Receipt Date: 20060216
  Transmission Date: 20060701
  Serious: Yes (Other)
  Sender: FDA-Public Use
  Company Number: None

PATIENT
  Age: 47 Year
  Sex: Female
  Weight: 89.8122 kg

DRUGS (1)
  1. SULFASALAZINE [Suspect]
     Indication: ARTHRITIS
     Dosage: 2 TABS -1000 MG - BID PO
     Route: 048
     Dates: start: 20060129, end: 20060213

REACTIONS (1)
  - STEVENS-JOHNSON SYNDROME [None]
